FAERS Safety Report 5968551-6 (Version None)
Quarter: 2008Q4

REPORT INFORMATION
  Report Type: 
  Country: None (occurrence: None)
  Receive Date: 20081119
  Receipt Date: 20080911
  Transmission Date: 20090506
  Serious: No
  Sender: FDA-Public Use
  Company Number: WAES 0804USA01556

PATIENT
  Age: 72 Year
  Sex: Male
  Weight: 100.2449 kg

DRUGS (14)
  1. JANUVIA [Suspect]
     Indication: TYPE 2 DIABETES MELLITUS
     Dosage: 100 MG/DAILY/PO
     Route: 048
     Dates: start: 20080206, end: 20080327
  2. ADVAIR HFA [Concomitant]
  3. COZAAR [Concomitant]
  4. ASPIRIN [Concomitant]
  5. FLOMAX [Concomitant]
  6. FLONASE [Concomitant]
  7. MAXZIDE [Concomitant]
  8. PULMICORT-100 [Concomitant]
  9. TOBRADEX [Concomitant]
  10. ALBUTEROL [Concomitant]
  11. ATENOLOL [Concomitant]
  12. LISINOPRIL [Concomitant]
  13. METFORMIN HCL [Concomitant]
  14. SIMVASTATIN [Concomitant]

REACTIONS (1)
  - DRUG ERUPTION [None]
